FAERS Safety Report 25124642 (Version 1)
Quarter: 2025Q1

REPORT INFORMATION
  Report Type: Spontaneous
  Country: CN (occurrence: CN)
  Receive Date: 20250326
  Receipt Date: 20250326
  Transmission Date: 20250409
  Serious: Yes (Other)
  Sender: SANDOZ
  Company Number: CN-SANDOZ-SDZ2025CN017932

PATIENT
  Age: 51 Year
  Sex: Female
  Weight: 56.1 kg

DRUGS (2)
  1. ZOLEDRONIC ACID [Suspect]
     Active Substance: ZOLEDRONIC ACID
     Indication: Osteoporosis
     Dosage: 5.000 MG, QD
     Route: 041
     Dates: start: 20250307, end: 20250307
  2. SODIUM CHLORIDE [Concomitant]
     Active Substance: SODIUM CHLORIDE
     Indication: Fluid replacement
     Dosage: 100.000 ML, QD
     Route: 041
     Dates: start: 20250307, end: 20250307

REACTIONS (1)
  - Leukopenia [Unknown]

NARRATIVE: CASE EVENT DATE: 20250310
